FAERS Safety Report 16513919 (Version 1)
Quarter: 2019Q3

REPORT INFORMATION
  Report Type: Spontaneous
  Country: US (occurrence: US)
  Receive Date: 20190701
  Receipt Date: 20190701
  Transmission Date: 20191004
  Serious: No
  Sender: FDA-Public Use
  Company Number: US-ROCHE-2230548

PATIENT
  Age: 70 Year
  Sex: Female

DRUGS (4)
  1. HYDROXOCOBALAMIN [Concomitant]
     Active Substance: HYDROXOCOBALAMIN
  2. UBIQUINOL [Concomitant]
     Active Substance: UBIQUINOL
  3. GLUTATHIONE [Concomitant]
     Active Substance: GLUTATHIONE
  4. CLONAZEPAM. [Suspect]
     Active Substance: CLONAZEPAM
     Indication: INSOMNIA
     Dosage: 3-4 MG
     Route: 065

REACTIONS (1)
  - Withdrawal syndrome [Unknown]
